FAERS Safety Report 26043780 (Version 1)
Quarter: 2025Q4

REPORT INFORMATION
  Report Type: Spontaneous
  Country: US (occurrence: US)
  Receive Date: 20251114
  Receipt Date: 20251114
  Transmission Date: 20260118
  Serious: Yes (Other)
  Sender: ACCORD
  Company Number: US-KOANAAP-SML-US-2025-00500

PATIENT
  Age: 62 Year
  Sex: Female

DRUGS (4)
  1. GEMCITABINE [Suspect]
     Active Substance: GEMCITABINE
     Indication: Epithelioid sarcoma
     Dosage: Q2 WEEK SCHEDULE
     Dates: start: 20230829, end: 20240227
  2. DOCETAXEL [Suspect]
     Active Substance: DOCETAXEL
     Indication: Epithelioid sarcoma
     Dosage: Q2 WEEK SCHEDULE
     Dates: start: 20230829, end: 20240227
  3. GEMCITABINE [Suspect]
     Active Substance: GEMCITABINE
     Indication: Neoplasm malignant
     Dosage: Q2 WEEK SCHEDULE
     Dates: start: 20230829, end: 20240227
  4. DOCETAXEL [Suspect]
     Active Substance: DOCETAXEL
     Indication: Neoplasm malignant
     Dosage: Q2 WEEK SCHEDULE
     Dates: start: 20230829, end: 20240227

REACTIONS (2)
  - Hyponatraemia [Unknown]
  - Pleural effusion [Unknown]

NARRATIVE: CASE EVENT DATE: 20240101
